FAERS Safety Report 21804975 (Version 3)
Quarter: 2023Q1

REPORT INFORMATION
  Report Type: Spontaneous
  Country: US (occurrence: None)
  Receive Date: 20230102
  Receipt Date: 20230320
  Transmission Date: 20230417
  Serious: Yes (Life-Threatening, Hospitalization, Disabling, Other)
  Sender: FDA-Public Use
  Company Number: 2022A420075

PATIENT
  Age: 17155 Day
  Sex: Female

DRUGS (3)
  1. FARXIGA [Suspect]
     Active Substance: DAPAGLIFLOZIN PROPANEDIOL
     Indication: Type 2 diabetes mellitus
     Route: 048
     Dates: start: 20220413
  2. FARXIGA [Concomitant]
     Active Substance: DAPAGLIFLOZIN PROPANEDIOL
     Indication: Diabetes mellitus
     Route: 048
     Dates: start: 20220701, end: 20221209
  3. OZEMPIC [Concomitant]
     Active Substance: SEMAGLUTIDE
     Indication: Type 2 diabetes mellitus
     Route: 065

REACTIONS (22)
  - Necrotising fasciitis [Recovering/Resolving]
  - Sepsis [Unknown]
  - Acute kidney injury [Unknown]
  - SARS-CoV-2 test positive [Unknown]
  - Oropharyngeal pain [Unknown]
  - Nausea [Unknown]
  - Wound infection staphylococcal [Unknown]
  - Urinary tract infection [Unknown]
  - Blood sodium abnormal [Unknown]
  - Blood potassium abnormal [Unknown]
  - Carbon dioxide abnormal [Unknown]
  - Blood glucose abnormal [Unknown]
  - Blood urea abnormal [Unknown]
  - Blood alkaline phosphatase abnormal [Unknown]
  - White blood cell count abnormal [Unknown]
  - Lymphocyte count abnormal [Unknown]
  - Neutrophil count abnormal [Unknown]
  - Klebsiella infection [Unknown]
  - Red blood cell count abnormal [Unknown]
  - Monocyte count abnormal [Unknown]
  - Drug ineffective [Unknown]
  - Product dose omission issue [Unknown]

NARRATIVE: CASE EVENT DATE: 20221210
